FAERS Safety Report 7044895-4 (Version None)
Quarter: 2010Q4

REPORT INFORMATION
  Report Type: 
  Country: None (occurrence: None)
  Receive Date: 20101014
  Receipt Date: 20100909
  Transmission Date: 20110411
  Serious: Yes (Hospitalization, Other)
  Sender: FDA-Public Use
  Company Number: US-BAXTER-2009BH017434

PATIENT
  Age: 34 Year
  Sex: Male
  Weight: 73 kg

DRUGS (73)
  1. HEPARIN SODIUM INJECTION [Suspect]
     Indication: THROMBOSIS PROPHYLAXIS
     Route: 065
     Dates: start: 20070911
  2. HEPARIN SODIUM INJECTION [Suspect]
     Indication: FISTULOGRAM
     Route: 065
     Dates: start: 20070911
  3. HEPARIN SODIUM INJECTION [Suspect]
     Route: 040
     Dates: start: 20080301
  4. HEPARIN SODIUM INJECTION [Suspect]
     Route: 040
     Dates: start: 20080301
  5. HEPARIN SODIUM INJECTION [Suspect]
     Route: 042
     Dates: start: 20080301
  6. HEPARIN SODIUM INJECTION [Suspect]
     Route: 042
     Dates: start: 20080301
  7. HEPARIN SODIUM INJECTION [Suspect]
     Route: 065
     Dates: start: 20080505
  8. HEPARIN SODIUM INJECTION [Suspect]
     Route: 065
     Dates: start: 20080505
  9. HEPARIN SODIUM INJECTION [Suspect]
     Route: 040
     Dates: start: 20080313
  10. HEPARIN SODIUM INJECTION [Suspect]
     Route: 040
     Dates: start: 20080313
  11. HEPARIN SODIUM INJECTION [Suspect]
     Route: 042
     Dates: start: 20080109, end: 20080110
  12. HEPARIN SODIUM INJECTION [Suspect]
     Route: 042
     Dates: start: 20080109, end: 20080110
  13. HEPARIN SODIUM INJECTION [Suspect]
     Route: 042
     Dates: start: 20080313
  14. HEPARIN SODIUM INJECTION [Suspect]
     Route: 042
     Dates: start: 20080313
  15. HEPARIN SODIUM INJECTION [Suspect]
     Route: 042
     Dates: start: 20080112, end: 20080112
  16. HEPARIN SODIUM INJECTION [Suspect]
     Route: 042
     Dates: start: 20080112, end: 20080112
  17. HEPARIN SODIUM INJECTION [Suspect]
     Route: 042
     Dates: start: 20080314
  18. HEPARIN SODIUM INJECTION [Suspect]
     Route: 042
     Dates: start: 20080314
  19. HEPARIN SODIUM INJECTION [Suspect]
     Route: 042
     Dates: start: 20080115, end: 20080115
  20. HEPARIN SODIUM INJECTION [Suspect]
     Route: 042
     Dates: start: 20080115, end: 20080115
  21. HEPARIN SODIUM INJECTION [Suspect]
     Route: 040
     Dates: start: 20080318
  22. HEPARIN SODIUM INJECTION [Suspect]
     Route: 040
     Dates: start: 20080318
  23. HEPARIN SODIUM INJECTION [Suspect]
     Route: 042
     Dates: start: 20080119, end: 20080119
  24. HEPARIN SODIUM INJECTION [Suspect]
     Route: 042
     Dates: start: 20080119, end: 20080119
  25. HEPARIN SODIUM INJECTION [Suspect]
     Route: 042
     Dates: start: 20080318
  26. HEPARIN SODIUM INJECTION [Suspect]
     Route: 042
     Dates: start: 20080318
  27. HEPARIN SODIUM INJECTION [Suspect]
     Route: 042
     Dates: start: 20080122, end: 20080122
  28. HEPARIN SODIUM INJECTION [Suspect]
     Route: 042
     Dates: start: 20080122, end: 20080122
  29. HEPARIN SODIUM INJECTION [Suspect]
     Route: 042
     Dates: start: 20080124, end: 20080124
  30. HEPARIN SODIUM INJECTION [Suspect]
     Route: 042
     Dates: start: 20080124, end: 20080124
  31. HEPARIN SODIUM INJECTION [Suspect]
     Route: 042
     Dates: start: 20080126, end: 20080126
  32. HEPARIN SODIUM INJECTION [Suspect]
     Route: 042
     Dates: start: 20080126, end: 20080126
  33. HEPARIN SODIUM INJECTION [Suspect]
     Route: 042
     Dates: start: 20080129, end: 20080129
  34. HEPARIN SODIUM INJECTION [Suspect]
     Route: 042
     Dates: start: 20080129, end: 20080129
  35. HEPARIN SODIUM INJECTION [Suspect]
     Route: 042
     Dates: start: 20080131, end: 20080131
  36. HEPARIN SODIUM INJECTION [Suspect]
     Route: 042
     Dates: start: 20080131, end: 20080131
  37. CLONIDINE [Concomitant]
     Indication: PRODUCT USED FOR UNKNOWN INDICATION
     Route: 065
  38. LISINOPRIL [Concomitant]
     Indication: PRODUCT USED FOR UNKNOWN INDICATION
     Route: 065
  39. NEPHROCAPS [Concomitant]
     Indication: PRODUCT USED FOR UNKNOWN INDICATION
     Route: 065
  40. IRON [Concomitant]
     Indication: PRODUCT USED FOR UNKNOWN INDICATION
     Route: 065
  41. EPOGEN [Concomitant]
     Indication: PRODUCT USED FOR UNKNOWN INDICATION
     Route: 065
  42. LOPRESSOR [Concomitant]
     Indication: PRODUCT USED FOR UNKNOWN INDICATION
     Route: 065
  43. FOSRENOL [Concomitant]
     Indication: PRODUCT USED FOR UNKNOWN INDICATION
     Route: 065
  44. SULAR [Concomitant]
     Indication: PRODUCT USED FOR UNKNOWN INDICATION
     Route: 065
  45. COZAAR [Concomitant]
     Indication: PRODUCT USED FOR UNKNOWN INDICATION
     Route: 065
  46. NEURONTIN [Concomitant]
     Indication: PRODUCT USED FOR UNKNOWN INDICATION
     Route: 065
  47. METOPROLOL [Concomitant]
     Indication: PRODUCT USED FOR UNKNOWN INDICATION
     Route: 065
  48. CLONAZEPAM [Concomitant]
     Indication: PRODUCT USED FOR UNKNOWN INDICATION
     Route: 048
  49. DILAUDID [Concomitant]
     Indication: PRODUCT USED FOR UNKNOWN INDICATION
     Route: 065
  50. XANAX [Concomitant]
     Indication: PRODUCT USED FOR UNKNOWN INDICATION
     Route: 065
  51. HYDRALAZINE HCL [Concomitant]
     Indication: PRODUCT USED FOR UNKNOWN INDICATION
     Route: 065
  52. EXCEDRIN (MIGRAINE) [Concomitant]
     Indication: HEADACHE
     Route: 048
  53. MIDRIN [Concomitant]
     Indication: PRODUCT USED FOR UNKNOWN INDICATION
     Route: 048
  54. ASPIRIN [Concomitant]
     Indication: PRODUCT USED FOR UNKNOWN INDICATION
     Route: 065
  55. ERGOCALCIFEROL [Concomitant]
     Indication: PRODUCT USED FOR UNKNOWN INDICATION
     Route: 065
  56. PHOSLO [Concomitant]
     Indication: PRODUCT USED FOR UNKNOWN INDICATION
     Route: 065
  57. SEVELAMER [Concomitant]
     Indication: PRODUCT USED FOR UNKNOWN INDICATION
     Route: 065
  58. FIORICET [Concomitant]
     Indication: HEADACHE
     Route: 065
  59. ZOLOFT [Concomitant]
     Indication: PRODUCT USED FOR UNKNOWN INDICATION
     Route: 065
  60. ASPIRIN [Concomitant]
     Indication: PRODUCT USED FOR UNKNOWN INDICATION
     Route: 065
  61. WELCHOL [Concomitant]
     Indication: PRODUCT USED FOR UNKNOWN INDICATION
     Route: 048
  62. NEBIVOLOL [Concomitant]
     Indication: PRODUCT USED FOR UNKNOWN INDICATION
     Route: 048
  63. NEURONTIN [Concomitant]
     Route: 048
  64. ULTRAM [Concomitant]
     Indication: PRODUCT USED FOR UNKNOWN INDICATION
     Route: 048
  65. TOPAMAX [Concomitant]
     Indication: PRODUCT USED FOR UNKNOWN INDICATION
     Route: 048
  66. MINOXIDIL [Concomitant]
     Indication: PRODUCT USED FOR UNKNOWN INDICATION
     Route: 048
  67. ULTRAM [Concomitant]
     Route: 048
  68. ZANTAC [Concomitant]
     Indication: PRODUCT USED FOR UNKNOWN INDICATION
     Route: 048
  69. NORVASK [Concomitant]
     Indication: PRODUCT USED FOR UNKNOWN INDICATION
     Route: 048
  70. HYDROMORPHONE HYDROCHLORIDE [Concomitant]
     Indication: PRODUCT USED FOR UNKNOWN INDICATION
     Route: 048
  71. LISINOPRIL [Concomitant]
     Route: 048
  72. FLEXERIL [Concomitant]
     Indication: PRODUCT USED FOR UNKNOWN INDICATION
     Route: 048
  73. DOXYCYCLINE HYCLATE [Concomitant]
     Indication: PRODUCT USED FOR UNKNOWN INDICATION
     Route: 048
     Dates: end: 20081212

REACTIONS (20)
  - ABDOMINAL PAIN [None]
  - BACK PAIN [None]
  - BLOOD PRESSURE DECREASED [None]
  - BLOOD PRESSURE FLUCTUATION [None]
  - COLITIS [None]
  - DIARRHOEA [None]
  - DIZZINESS [None]
  - DYSPNOEA [None]
  - FATIGUE [None]
  - FEELING HOT [None]
  - FLUSHING [None]
  - HEADACHE [None]
  - HYPERHIDROSIS [None]
  - LEUKOPENIA [None]
  - LOSS OF CONSCIOUSNESS [None]
  - LYMPHOCYTOSIS [None]
  - PALLOR [None]
  - PYREXIA [None]
  - THROMBOCYTOPENIA [None]
  - VOMITING [None]
